FAERS Safety Report 4698459-8 (Version None)
Quarter: 2005Q2

REPORT INFORMATION
  Report Type: 
  Country: None (occurrence: None)
  Receive Date: 20050621
  Receipt Date: 20050608
  Transmission Date: 20051028
  Serious: Yes (Death, Hospitalization, Other)
  Sender: FDA-Public Use
  Company Number: JP_050406428

PATIENT
  Age: 72 Year
  Sex: Male

DRUGS (4)
  1. PERMAX [Suspect]
     Indication: PARKINSON'S DISEASE
     Dosage: 1000 UG DAY
     Dates: start: 19950701
  2. LEVODOPA [Concomitant]
  3. SELEGILINE HYDROCHLORIDE [Concomitant]
  4. SYMMETREL [Concomitant]

REACTIONS (5)
  - AORTIC VALVE STENOSIS [None]
  - CARDIAC FAILURE [None]
  - EJECTION FRACTION DECREASED [None]
  - MULTI-ORGAN FAILURE [None]
  - OEDEMA PERIPHERAL [None]
